FAERS Safety Report 12162674 (Version 1)
Quarter: 2016Q1

REPORT INFORMATION
  Report Type: Spontaneous
  Country: US (occurrence: US)
  Receive Date: 20160309
  Receipt Date: 20160309
  Transmission Date: 20160526
  Serious: No
  Sender: FDA-Public Use
  Company Number: US-PFIZER INC-2016142358

PATIENT
  Age: 51 Year
  Sex: Female

DRUGS (4)
  1. OSPHENA [Suspect]
     Active Substance: OSPEMIFENE
  2. VIVELLE-DOT [Suspect]
     Active Substance: ESTRADIOL
  3. MINIVELLE [Suspect]
     Active Substance: ESTRADIOL
  4. PREMARIN [Suspect]
     Active Substance: ESTROGENS, CONJUGATED

REACTIONS (1)
  - Drug ineffective [Unknown]
